FAERS Safety Report 4714818-9 (Version None)
Quarter: 2005Q3

REPORT INFORMATION
  Report Type: 
  Country: None (occurrence: None)
  Receive Date: 20050714
  Receipt Date: 20050714
  Transmission Date: 20060218
  Serious: Yes (Other)
  Sender: FDA-Public Use
  Company Number: None

PATIENT
  Sex: Female
  Weight: 88.9 kg

DRUGS (1)
  1. INTERERFERON-ALPHA [Suspect]
     Indication: RENAL CELL CARCINOMA STAGE UNSPECIFIED
     Dosage: 9.0MU SC 3X/WEEK. CYCLE=4WEEKS
     Route: 058
     Dates: start: 20050404, end: 20050620

REACTIONS (2)
  - ANAEMIA [None]
  - ENCEPHALOPATHY [None]
